FAERS Safety Report 5917545-5 (Version None)
Quarter: 2008Q4

REPORT INFORMATION
  Report Type: 
  Country: None (occurrence: None)
  Receive Date: 20081009
  Receipt Date: 20080925
  Transmission Date: 20090506
  Serious: Yes (Death, Hospitalization)
  Sender: FDA-Public Use
  Company Number: 2008AL007633

PATIENT
  Age: 89 Year
  Sex: Female

DRUGS (5)
  1. IBUPROFEN TABLETS [Suspect]
     Dosage: 1200 MG; QD
     Dates: start: 20030101, end: 20080501
  2. POTASSIUM CHLORIDE [Concomitant]
  3. MORPHINE [Concomitant]
  4. BISACODYL [Concomitant]
  5. INDOMETHACIN [Concomitant]

REACTIONS (12)
  - ATRIAL FIBRILLATION [None]
  - CONSTIPATION [None]
  - CYSTITIS [None]
  - DEHYDRATION [None]
  - DUODENAL ULCER [None]
  - FALL [None]
  - GASTRIC ULCER [None]
  - OSTEOARTHRITIS [None]
  - OSTEOPOROSIS [None]
  - RHEUMATOID ARTHRITIS [None]
  - SPINAL COLUMN STENOSIS [None]
  - URINARY TRACT INFECTION [None]
